FAERS Safety Report 13272294 (Version 1)
Quarter: 2017Q1

REPORT INFORMATION
  Report Type: Spontaneous
  Country: JP (occurrence: JP)
  Receive Date: 20170227
  Receipt Date: 20170227
  Transmission Date: 20170428
  Serious: Yes (Other)
  Sender: FDA-Public Use
  Company Number: JP-EISAI MEDICAL RESEARCH-EC-2017-025281

PATIENT
  Age: 6 Year
  Sex: Female

DRUGS (5)
  1. INOVELON [Suspect]
     Active Substance: RUFINAMIDE
     Route: 048
     Dates: start: 20160730, end: 20160731
  2. INOVELON [Suspect]
     Active Substance: RUFINAMIDE
     Indication: PRODUCT USED FOR UNKNOWN INDICATION
     Route: 048
     Dates: start: 20160726, end: 20160727
  3. INOVELON [Suspect]
     Active Substance: RUFINAMIDE
     Route: 048
     Dates: start: 20160728, end: 20160729
  4. INOVELON [Suspect]
     Active Substance: RUFINAMIDE
     Route: 048
     Dates: start: 20160801, end: 201608
  5. INOVELON [Suspect]
     Active Substance: RUFINAMIDE
     Dosage: DOWN-TITRATION
     Route: 048
     Dates: start: 201608, end: 201608

REACTIONS (3)
  - Mastication disorder [Recovered/Resolved]
  - Tonic convulsion [Recovered/Resolved]
  - Dysphagia [Recovered/Resolved]

NARRATIVE: CASE EVENT DATE: 20160803
